FAERS Safety Report 26045854 (Version 1)
Quarter: 2025Q4

REPORT INFORMATION
  Report Type: Report from Study
  Country: EU (occurrence: EU)
  Receive Date: 20251114
  Receipt Date: 20251114
  Transmission Date: 20260118
  Serious: Yes (Other)
  Sender: RANBAXY
  Company Number: EU-SUN PHARMACEUTICAL INDUSTRIES LTD-2025R1-535849

PATIENT

DRUGS (1)
  1. EMPAGLIFLOZIN [Suspect]
     Active Substance: EMPAGLIFLOZIN
     Indication: Heart failure with preserved ejection fraction
     Dosage: 10 MILLIGRAM, DAILY
     Route: 065

REACTIONS (2)
  - Dizziness [Unknown]
  - Hypotension [Unknown]
